FAERS Safety Report 23848021 (Version 2)
Quarter: 2024Q2

REPORT INFORMATION
  Report Type: Report from Study
  Country: US (occurrence: US)
  Receive Date: 20240513
  Receipt Date: 20240603
  Transmission Date: 20240716
  Serious: Yes (Hospitalization, Other)
  Sender: FDA-Public Use
  Company Number: US-GILEAD-2024-0672357

PATIENT
  Age: 77 Year
  Sex: Female

DRUGS (16)
  1. AZTREONAM LYSINE [Suspect]
     Active Substance: AZTREONAM LYSINE
     Indication: Cystic fibrosis
     Dosage: 75 MG, TID (INHALE 75 MG VIA NEBULIZER EVERY 8 HOURS. USE 28 DAYS ON, 28 DAYS OFF, THEN REPEAT)
     Route: 055
     Dates: start: 20150408
  2. CLOTRIMAZOLE [Concomitant]
     Active Substance: CLOTRIMAZOLE
  3. COENZYME Q10 [Concomitant]
     Active Substance: DIETARY SUPPLEMENT\UBIDECARENONE
  4. GARLIC [Concomitant]
     Active Substance: GARLIC
  5. VITAMIN C [Concomitant]
     Active Substance: ASCORBIC ACID
  6. ROYAL JELLY [Concomitant]
     Active Substance: ROYAL JELLY
  7. MAGNESIUM [Concomitant]
     Active Substance: MAGNESIUM
  8. PULMOZYME [Concomitant]
     Active Substance: DORNASE ALFA
  9. CREON [Concomitant]
     Active Substance: PANCRELIPASE AMYLASE\PANCRELIPASE LIPASE\PANCRELIPASE PROTEASE
  10. ADVAIR HFA [Concomitant]
     Active Substance: FLUTICASONE PROPIONATE\SALMETEROL XINAFOATE
  11. FUROSEMIDE [Concomitant]
     Active Substance: FUROSEMIDE
  12. OMEPRAZOLE [Concomitant]
     Active Substance: DONEPEZIL HYDROCHLORIDE\OMEPRAZOLE\OMEPRAZOLE MAGNESIUM
  13. ALBUTEROL SULFATE [Concomitant]
     Active Substance: ALBUTEROL SULFATE
  14. FLUTICASONE PROPIONATE\SALMETEROL XINAFOATE [Concomitant]
     Active Substance: FLUTICASONE PROPIONATE\SALMETEROL XINAFOATE
  15. TOBRAMYCIN [Concomitant]
     Active Substance: TOBRAMYCIN\TOBRAMYCIN SULFATE
  16. AMOXICILLIN\CLAVULANATE POTASSIUM [Concomitant]
     Active Substance: AMOXICILLIN\CLAVULANATE POTASSIUM

REACTIONS (18)
  - Cystic fibrosis [Unknown]
  - Lung disorder [Unknown]
  - Pneumonia [Unknown]
  - Cystic fibrosis respiratory infection suppression [Unknown]
  - Dyspnoea [Unknown]
  - Exercise tolerance decreased [Unknown]
  - Nasal inflammation [Unknown]
  - Nasal congestion [Unknown]
  - Productive cough [Unknown]
  - Wheezing [Unknown]
  - Respiratory disorder [Unknown]
  - Constipation [Unknown]
  - Nausea [Unknown]
  - Fatigue [Unknown]
  - Somnolence [Unknown]
  - Asthenia [Unknown]
  - Diarrhoea [Unknown]
  - Gastrointestinal disorder [Unknown]

NARRATIVE: CASE EVENT DATE: 20240506
